FAERS Safety Report 19748495 (Version 1)
Quarter: 2021Q3

REPORT INFORMATION
  Report Type: Spontaneous
  Country: US (occurrence: US)
  Receive Date: 20210825
  Receipt Date: 20210825
  Transmission Date: 20211014
  Serious: No
  Sender: FDA-Public Use
  Company Number: None

PATIENT
  Age: 52 Year
  Sex: Male
  Weight: 99 kg

DRUGS (4)
  1. MULTIVITAMIN [Concomitant]
     Active Substance: VITAMINS
  2. GABAPENTIN. [Concomitant]
     Active Substance: GABAPENTIN
  3. TRAMADOL HCL 59MG TABLET [Suspect]
     Active Substance: TRAMADOL HYDROCHLORIDE
     Indication: NEURALGIA
     Dosage: ?          QUANTITY:2 TABLET(S);?
     Route: 048
     Dates: start: 20210818, end: 20210825
  4. IBUPROFEN. [Concomitant]
     Active Substance: IBUPROFEN

REACTIONS (13)
  - Inadequate analgesia [None]
  - Product quality issue [None]
  - Disturbance in attention [None]
  - Sedation [None]
  - Product substitution issue [None]
  - Loss of consciousness [None]
  - Coordination abnormal [None]
  - Nausea [None]
  - Adverse drug reaction [None]
  - Headache [None]
  - Vision blurred [None]
  - Gait disturbance [None]
  - Asthenopia [None]

NARRATIVE: CASE EVENT DATE: 20210818
